FAERS Safety Report 18316970 (Version 5)
Quarter: 2020Q4

REPORT INFORMATION
  Report Type: Spontaneous
  Country: JP (occurrence: JP)
  Receive Date: 20200928
  Receipt Date: 20201120
  Transmission Date: 20210113
  Serious: Yes (Hospitalization, Other)
  Sender: FDA-Public Use
  Company Number: JP-BEH-2020122719

PATIENT
  Age: 78 Year
  Sex: Female
  Weight: 73.7 kg

DRUGS (25)
  1. ALBUMINAR-25 [Suspect]
     Active Substance: ALBUMIN HUMAN
     Indication: OEDEMA
     Dosage: 100 MILLILITER, TOT
     Route: 041
     Dates: start: 20200802, end: 20200802
  2. PROPOFOL. [Concomitant]
     Active Substance: PROPOFOL
     Dosage: UNK
     Route: 065
     Dates: start: 202007
  3. E KEPPRA [Concomitant]
     Active Substance: LEVETIRACETAM
  4. GLUCOSE [GLUCOSE MONOHYDRATE] [Concomitant]
     Active Substance: DEXTROSE MONOHYDRATE
     Indication: HYPERKALAEMIA
     Dosage: UNK
     Route: 065
     Dates: start: 20200727
  5. INSULIN [Concomitant]
     Active Substance: INSULIN NOS
     Indication: HYPERKALAEMIA
     Dosage: UNK
     Route: 065
     Dates: start: 20200727
  6. FRESH FROZEN PLASMA [Concomitant]
     Active Substance: HUMAN PLASMA
     Indication: POST PROCEDURAL HAEMORRHAGE
     Dosage: UNK
     Route: 065
     Dates: start: 20200727
  7. ALBUMINAR-25 [Suspect]
     Active Substance: ALBUMIN HUMAN
     Dosage: 100 MILLILITER, TOT
     Route: 041
     Dates: start: 20200807, end: 20200807
  8. ALBUMINAR-25 [Suspect]
     Active Substance: ALBUMIN HUMAN
     Dosage: 100 MILLILITER, TOT
     Route: 041
     Dates: start: 20200824, end: 20200824
  9. ALBUMINAR-25 [Suspect]
     Active Substance: ALBUMIN HUMAN
     Dosage: 100 MILLILITER, TOT
     Route: 041
     Dates: start: 20200828, end: 20200828
  10. ALBUMINAR-25 [Suspect]
     Active Substance: ALBUMIN HUMAN
     Dosage: UNK
     Route: 065
     Dates: start: 20200907, end: 20200907
  11. ALBUMINAR-25 [Suspect]
     Active Substance: ALBUMIN HUMAN
     Dosage: 100 MILLILITER, TOT
     Route: 041
     Dates: start: 20200831, end: 20200831
  12. HANP [Concomitant]
     Active Substance: CARPERITIDE
  13. FENTANYL CITRATE. [Concomitant]
     Active Substance: FENTANYL CITRATE
     Dosage: UNK
     Route: 065
     Dates: start: 20200820
  14. LASIX [Concomitant]
     Active Substance: FUROSEMIDE
  15. ALBUMINAR-25 [Suspect]
     Active Substance: ALBUMIN HUMAN
     Indication: BLOOD ALBUMIN DECREASED
     Dosage: 100 MILLILITER, TOT
     Route: 041
     Dates: start: 20200727, end: 20200727
  16. ALBUMINAR-25 [Suspect]
     Active Substance: ALBUMIN HUMAN
     Indication: POST PROCEDURAL HAEMORRHAGE
     Dosage: 100 MILLILITER, TOT
     Route: 041
     Dates: start: 20200731, end: 20200731
  17. TAZOPIPE [Concomitant]
     Active Substance: PIPERACILLIN SODIUM\TAZOBACTAM SODIUM
  18. DORMICUM [MIDAZOLAM] [Concomitant]
     Active Substance: MIDAZOLAM HYDROCHLORIDE
     Dosage: UNK
     Route: 065
     Dates: start: 20200820
  19. MEROPENEM TRIHYDRATE [Concomitant]
     Active Substance: MEROPENEM
  20. SOLU-CORTEF [Concomitant]
     Active Substance: HYDROCORTISONE SODIUM SUCCINATE
     Dosage: 100 MILLIGRAM (1 VIAL), QD
     Route: 065
     Dates: start: 20200902
  21. RED BLOOD CELLS [Concomitant]
     Active Substance: HUMAN RED BLOOD CELL
     Indication: POST PROCEDURAL HAEMORRHAGE
     Dosage: UNK
     Route: 065
     Dates: start: 20200727
  22. ALBUMINAR-25 [Suspect]
     Active Substance: ALBUMIN HUMAN
     Dosage: 100 MILLILITER, TOT
     Route: 041
     Dates: start: 20200804, end: 20200804
  23. ALBUMINAR-25 [Suspect]
     Active Substance: ALBUMIN HUMAN
     Dosage: 100 MILLILITER, TOT
     Route: 041
     Dates: start: 20200902, end: 20200902
  24. FENTANYL CITRATE. [Concomitant]
     Active Substance: FENTANYL CITRATE
     Indication: SEDATION
     Dosage: UNK
     Route: 065
     Dates: start: 20200802
  25. DORMICUM [MIDAZOLAM] [Concomitant]
     Active Substance: MIDAZOLAM HYDROCHLORIDE
     Indication: SEDATION
     Dosage: UNK
     Route: 065
     Dates: start: 20200802

REACTIONS (15)
  - Seizure [Unknown]
  - Ventricular extrasystoles [Unknown]
  - Tracheostomy [Unknown]
  - Generalised oedema [Unknown]
  - Pericardial effusion [Unknown]
  - Extrasystoles [Unknown]
  - Cerebral infarction [Unknown]
  - Blood albumin decreased [Unknown]
  - Respiratory disorder [Unknown]
  - Pleural effusion [Unknown]
  - Atelectasis [Unknown]
  - Arrhythmia [Unknown]
  - Depressed level of consciousness [Unknown]
  - Blood pressure decreased [Recovered/Resolved]
  - Renal impairment [Unknown]

NARRATIVE: CASE EVENT DATE: 20200728
